FAERS Safety Report 16460194 (Version 1)
Quarter: 2019Q2

REPORT INFORMATION
  Report Type: Spontaneous
  Country: CA (occurrence: CA)
  Receive Date: 20190620
  Receipt Date: 20190620
  Transmission Date: 20190711
  Serious: Yes (Life-Threatening, Hospitalization)
  Sender: FDA-Public Use
  Company Number: CA-TEVA-2019-CA-1066238

PATIENT
  Age: 61 Year
  Sex: Female

DRUGS (7)
  1. METHYLPREDNISOLONESODIUM SUCCINATE [Suspect]
     Active Substance: METHYLPREDNISOLONE SODIUM SUCCINATE
     Indication: PRODUCT USED FOR UNKNOWN INDICATION
     Route: 042
  2. METRONIDAZOLE. [Concomitant]
     Active Substance: METRONIDAZOLE
     Indication: ABDOMINAL ABSCESS
  3. METRONIDAZOLE. [Concomitant]
     Active Substance: METRONIDAZOLE
     Indication: SEPSIS
  4. MEROPENEM. [Concomitant]
     Active Substance: MEROPENEM
     Indication: ABDOMINAL ABSCESS
  5. CEFAZOLIN [Concomitant]
     Active Substance: CEFAZOLIN
     Indication: PAROTITIS
     Route: 065
  6. CIPROFLOXACIN. [Concomitant]
     Active Substance: CIPROFLOXACIN
     Indication: BACTERAEMIA
  7. MEROPENEM. [Concomitant]
     Active Substance: MEROPENEM
     Indication: SEPSIS

REACTIONS (1)
  - Herpes simplex colitis [Recovering/Resolving]
